FAERS Safety Report 4721233-0 (Version None)
Quarter: 2005Q3

REPORT INFORMATION
  Report Type: 
  Country: None (occurrence: None)
  Receive Date: 20050722
  Receipt Date: 20050714
  Transmission Date: 20060218
  Serious: Yes (Hospitalization, Other)
  Sender: FDA-Public Use
  Company Number: GB-JNJFOC-20050702672

PATIENT
  Sex: Female
  Weight: 87 kg

DRUGS (8)
  1. REMICADE [Suspect]
     Indication: RHEUMATOID ARTHRITIS
     Route: 042
  2. METHATREXATE [Concomitant]
     Route: 065
  3. FOLIC ACID [Concomitant]
     Route: 065
  4. DEFLAZACORT [Concomitant]
     Route: 065
  5. FOSAMAX [Concomitant]
     Route: 065
  6. NAPROXEN [Concomitant]
     Route: 065
  7. ADCAL [Concomitant]
     Route: 065
  8. FERROUS SULFATE TAB [Concomitant]
     Route: 065

REACTIONS (1)
  - FISTULA REPAIR [None]
